FAERS Safety Report 6089314-X (Version None)
Quarter: 2009Q1

REPORT INFORMATION
  Report Type: 
  Country: None (occurrence: None)
  Receive Date: 20090224
  Receipt Date: 20090220
  Transmission Date: 20090719
  Serious: Yes (Hospitalization, Other)
  Sender: FDA-Public Use
  Company Number: US-ASTRAZENECA-2009UW04836

PATIENT
  Age: 53 Year
  Sex: Male

DRUGS (19)
  1. SEROQUEL [Suspect]
     Indication: BIPOLAR DISORDER
     Route: 048
     Dates: end: 20090201
  2. SEROQUEL [Suspect]
     Indication: MANIA
     Route: 048
     Dates: end: 20090201
  3. LITHIUM [Concomitant]
  4. BUSPAR [Concomitant]
  5. REMERON [Concomitant]
  6. ZYPREXA [Concomitant]
  7. HYDROCHLOROTHIAZIDE [Concomitant]
     Indication: FLUID RETENTION
  8. OXYCODONE [Concomitant]
     Indication: SPINAL CORD DISORDER
  9. OXYCODONE [Concomitant]
     Indication: ARTHRITIS
  10. DIAZEPAM [Concomitant]
  11. ADVAIR DISKUS 100/50 [Concomitant]
     Dosage: 250M/50
  12. PROMETHAZINE [Concomitant]
     Indication: NAUSEA
  13. PRILOSEC OTC [Concomitant]
  14. IBUPROFEN [Concomitant]
  15. CYCLOBENZAPRINE [Concomitant]
  16. ALBUTEROL [Concomitant]
     Indication: CHRONIC OBSTRUCTIVE PULMONARY DISEASE
     Route: 055
  17. COMBIVENT [Concomitant]
     Indication: CHRONIC OBSTRUCTIVE PULMONARY DISEASE
     Route: 055
  18. LESCOL [Concomitant]
     Indication: BLOOD CHOLESTEROL
  19. ZYRTEC [Concomitant]

REACTIONS (6)
  - CEREBROVASCULAR ACCIDENT [None]
  - DEPRESSED MOOD [None]
  - HALLUCINATION, AUDITORY [None]
  - INSOMNIA [None]
  - LOSS OF CONSCIOUSNESS [None]
  - SUICIDAL IDEATION [None]
